FAERS Safety Report 6307048-0 (Version None)
Quarter: 2009Q3

REPORT INFORMATION
  Report Type: 
  Country: None (occurrence: None)
  Receive Date: 20090812
  Receipt Date: 20090731
  Transmission Date: 20100115
  Serious: Yes (Other)
  Sender: FDA-Public Use
  Company Number: US-WYE-H10420309

PATIENT
  Sex: Male
  Weight: 88.08 kg

DRUGS (6)
  1. PRISTIQ [Suspect]
     Indication: DEPRESSION
     Route: 048
     Dates: start: 20080411
  2. ALEVE [Concomitant]
     Indication: POST PROCEDURAL DISCOMFORT
     Dates: start: 20090701, end: 20090729
  3. ALEVE [Concomitant]
     Dates: start: 20090701
  4. AMILORIDE HCL AND HYDROCHLOROTHIAZIDE [Concomitant]
  5. ALLOPURINOL [Concomitant]
  6. POTASSIUM CITRATE [Concomitant]
     Dosage: 10 MEQ 6 TABLETS THREE TIMES DAILY

REACTIONS (2)
  - BLOOD PRESSURE INCREASED [None]
  - TRANSIENT ISCHAEMIC ATTACK [None]
